FAERS Safety Report 7854150-8 (Version None)
Quarter: 2011Q3

REPORT INFORMATION
  Report Type: 
  Country: None (occurrence: None)
  Receive Date: 20110916
  Receipt Date: 20110105
  Transmission Date: 20111222
  Serious: Yes (Other)
  Sender: FDA-Public Use
  Company Number: 2011SP000775

PATIENT
  Age: 40 Year
  Sex: Female
  Weight: 77.1115 kg

DRUGS (5)
  1. FISH OIL [Concomitant]
  2. MULTI-VITAMIN [Concomitant]
  3. MALARIA [Concomitant]
  4. IMPLANON [Suspect]
     Indication: CONTRACEPTION
     Dates: start: 20100302
  5. GARLIC [Concomitant]

REACTIONS (2)
  - THROMBOSIS [None]
  - MENOMETRORRHAGIA [None]
